FAERS Safety Report 6396048-0 (Version None)
Quarter: 2009Q4

REPORT INFORMATION
  Report Type: 
  Country: None (occurrence: None)
  Receive Date: 20091007
  Receipt Date: 20090924
  Transmission Date: 20100525
  Serious: Yes (Hospitalization, Other)
  Sender: FDA-Public Use
  Company Number: 231171J09USA

PATIENT
  Age: 55 Year
  Sex: Female

DRUGS (1)
  1. REBIF [Suspect]
     Indication: MULTIPLE SCLEROSIS
     Dosage: 44 MCG, 3 IN 1 WEEKS, SUBCUTANEOUS
     Route: 058
     Dates: start: 20060328

REACTIONS (6)
  - ABDOMINAL PAIN UPPER [None]
  - EATING DISORDER [None]
  - GASTRIC CANCER [None]
  - INFECTION [None]
  - MENORRHAGIA [None]
  - UTERINE CANCER [None]
